FAERS Safety Report 19139227 (Version 1)
Quarter: 2021Q2

REPORT INFORMATION
  Report Type: Spontaneous
  Country: US (occurrence: US)
  Receive Date: 20210414
  Receipt Date: 20210414
  Transmission Date: 20210717
  Serious: Yes (Hospitalization)
  Sender: FDA-Public Use
  Company Number: None

PATIENT
  Sex: Female

DRUGS (2)
  1. COSENTYX [Suspect]
     Active Substance: SECUKINUMAB
     Indication: PSORIASIS
     Dosage: ?          OTHER FREQUENCY:Q 4 WKS;?
     Route: 058
     Dates: start: 20200715
  2. LASIX [Concomitant]
     Active Substance: FUROSEMIDE

REACTIONS (3)
  - Condition aggravated [None]
  - Renal failure [None]
  - Arthralgia [None]
